FAERS Safety Report 9215428 (Version 1)
Quarter: 2013Q2

REPORT INFORMATION
  Report Type: Report from Study
  Country: ZA (occurrence: ZA)
  Receive Date: 20130405
  Receipt Date: 20130405
  Transmission Date: 20140414
  Serious: Yes (Other)
  Sender: FDA-Public Use
  Company Number: ZA-AMGEN-ZAFCT2011038707

PATIENT
  Age: 83 Year
  Sex: Male

DRUGS (6)
  1. DENOSUMAB [Suspect]
     Indication: OVARIAN CANCER
     Dates: start: 20071023
  2. AMOXICILLIN [Concomitant]
     Dosage: 500 MG, TID
     Route: 048
     Dates: start: 20101221
  3. FLAGYL [Concomitant]
     Dosage: 400 MG, TID
     Route: 048
     Dates: start: 20101221
  4. UBISTESIN FORTE [Concomitant]
     Dosage: 3.4 ML, UNK
     Dates: start: 20110111, end: 20110111
  5. CALCIUM [Concomitant]
     Dosage: UNK
     Dates: start: 20071023
  6. VITAMIN D [Concomitant]
     Dosage: UNK
     Dates: start: 20071023

REACTIONS (1)
  - Osteonecrosis of jaw [Recovered/Resolved]
